FAERS Safety Report 7119251-0 (Version None)
Quarter: 2010Q4

REPORT INFORMATION
  Report Type: 
  Country: None (occurrence: None)
  Receive Date: 20101123
  Receipt Date: 20101117
  Transmission Date: 20110411
  Serious: Yes (Hospitalization)
  Sender: FDA-Public Use
  Company Number: FR-BAYER-201047410GPV

PATIENT
  Age: 17 Year
  Sex: Male

DRUGS (3)
  1. SKINOREN 20 % [Suspect]
     Indication: ACNE
     Dosage: TOTAL DAILY DOSE: 1 DF
     Route: 003
     Dates: start: 20090101
  2. BREVOXYL 4 % [Suspect]
     Indication: ACNE
     Route: 003
     Dates: start: 20100901
  3. ECNACLYN (BOVINE LACTOFERRIN) [Concomitant]
     Indication: MEDICAL DIET
     Dates: start: 20100701

REACTIONS (3)
  - ABDOMINAL PAIN [None]
  - CYTOLYTIC HEPATITIS [None]
  - NAUSEA [None]
